FAERS Safety Report 6547558-4 (Version None)
Quarter: 2010Q1

REPORT INFORMATION
  Report Type: 
  Country: None (occurrence: None)
  Receive Date: 20100122
  Receipt Date: 20100115
  Transmission Date: 20100710
  Serious: Yes (Death)
  Sender: FDA-Public Use
  Company Number: US-JNJFOC-20100105547

PATIENT
  Age: 6 Year
  Sex: Female

DRUGS (3)
  1. TRAMADOL [Suspect]
     Indication: ACCIDENTAL EXPOSURE
     Route: 048
  2. DIPHENHYDRAMINE [Suspect]
     Route: 048
  3. DIPHENHYDRAMINE [Suspect]
     Indication: ACCIDENTAL EXPOSURE
     Route: 048

REACTIONS (2)
  - ACCIDENTAL DRUG INTAKE BY CHILD [None]
  - DRUG TOXICITY [None]
